FAERS Safety Report 9419546 (Version 1)
Quarter: 2013Q3

REPORT INFORMATION
  Report Type: Spontaneous
  Country: US (occurrence: US)
  Receive Date: 20130725
  Receipt Date: 20130725
  Transmission Date: 20140515
  Serious: Yes (Hospitalization, Other)
  Sender: FDA-Public Use
  Company Number: US-BAXTER-2013BAX028140

PATIENT
  Age: 69 Year
  Sex: Female

DRUGS (1)
  1. DIANEAL LOW CALCIUM [Suspect]
     Indication: PERITONEAL DIALYSIS
     Route: 033

REACTIONS (8)
  - Cardiac disorder [Recovering/Resolving]
  - Fall [Recovered/Resolved]
  - Head injury [Unknown]
  - Memory impairment [Recovering/Resolving]
  - Confusional state [Recovering/Resolving]
  - Ammonia increased [Recovering/Resolving]
  - Atrial fibrillation [Recovering/Resolving]
  - Musculoskeletal pain [Recovering/Resolving]
